FAERS Safety Report 10771224 (Version 1)
Quarter: 2015Q1

REPORT INFORMATION
  Report Type: Spontaneous
  Country: BR (occurrence: BR)
  Receive Date: 20150206
  Receipt Date: 20150206
  Transmission Date: 20150721
  Serious: Yes (Other)
  Sender: FDA-Public Use
  Company Number: BR-009507513-1502BRA002036

PATIENT
  Sex: Female
  Weight: 69 kg

DRUGS (2)
  1. MERCILON [Suspect]
     Active Substance: DESOGESTREL\ETHINYL ESTRADIOL
     Indication: CONTRACEPTION
     Route: 048
  2. CLOMID [Concomitant]
     Active Substance: CLOMIPHENE CITRATE
     Indication: PREGNANCY

REACTIONS (2)
  - Maternal exposure before pregnancy [Unknown]
  - Abortion [Unknown]

NARRATIVE: CASE EVENT DATE: 2002
